FAERS Safety Report 21832030 (Version 1)
Quarter: 2023Q1

REPORT INFORMATION
  Report Type: Spontaneous
  Country: US (occurrence: US)
  Receive Date: 20230106
  Receipt Date: 20230106
  Transmission Date: 20230418
  Serious: No
  Sender: FDA-Public Use
  Company Number: US-Blueprint Medicines Corporation-692

PATIENT
  Sex: Male

DRUGS (2)
  1. AYVAKIT [Suspect]
     Active Substance: AVAPRITINIB
     Indication: Haematopoietic neoplasm
     Dosage: 50MG EVERY OTHER DAY ALTERNATING WITH 100MG EVERY OTHER DAY
     Route: 065
     Dates: start: 20210724
  2. AYVAKIT [Suspect]
     Active Substance: AVAPRITINIB
     Dosage: 50MG EVERY OTHER DAY ALTERNATING WITH 100MG EVERY OTHER DAY
     Route: 065
     Dates: start: 20210724

REACTIONS (5)
  - Eye swelling [Unknown]
  - Blister [Unknown]
  - Skin fissures [Unknown]
  - Nerve injury [Unknown]
  - Gastric mucosal lesion [Unknown]
